FAERS Safety Report 11824380 (Version 1)
Quarter: 2015Q4

REPORT INFORMATION
  Report Type: Spontaneous
  Country: US (occurrence: US)
  Receive Date: 20151210
  Receipt Date: 20151210
  Transmission Date: 20160305
  Serious: Yes (Hospitalization, Other)
  Sender: FDA-Public Use
  Company Number: US-GLAXOSMITHKLINE-US2015GSK174936

PATIENT
  Age: 41 Year
  Sex: Male

DRUGS (1)
  1. VENTOLIN HFA [Suspect]
     Active Substance: ALBUTEROL SULFATE
     Indication: ASTHMA
     Dosage: UNK
     Dates: start: 1988

REACTIONS (4)
  - Hospitalisation [Unknown]
  - Jaw fracture [Unknown]
  - Bone operation [Unknown]
  - Physical assault [Unknown]

NARRATIVE: CASE EVENT DATE: 20151115
